FAERS Safety Report 8531093-8 (Version None)
Quarter: 2012Q3

REPORT INFORMATION
  Report Type: 
  Country: None (occurrence: None)
  Receive Date: 20120723
  Receipt Date: 20120710
  Transmission Date: 20120928
  Serious: Yes (Other)
  Sender: FDA-Public Use
  Company Number: CA-ASTRAZENECA-2012SE48671

PATIENT
  Age: 50 Year
  Sex: Female

DRUGS (1)
  1. CAPRELSA [Suspect]
     Indication: THYROID CANCER
     Route: 048
     Dates: start: 20120618, end: 20120703

REACTIONS (1)
  - ELECTROCARDIOGRAM ABNORMAL [None]
